FAERS Safety Report 17141993 (Version 4)
Quarter: 2019Q4

REPORT INFORMATION
  Report Type: Report from Study
  Country: IE (occurrence: IE)
  Receive Date: 20191211
  Receipt Date: 20191227
  Transmission Date: 20200122
  Serious: Yes (Hospitalization)
  Sender: FDA-Public Use
  Company Number: IE-EISAI MEDICAL RESEARCH-EC-2019-066846

PATIENT
  Age: 68 Year
  Sex: Female
  Weight: 59.1 kg

DRUGS (22)
  1. IMODIUM [Concomitant]
     Active Substance: LOPERAMIDE HYDROCHLORIDE
     Dates: start: 201906
  2. THIAMINE. [Concomitant]
     Active Substance: THIAMINE
     Dates: start: 20190904
  3. LENVATINIB [Suspect]
     Active Substance: LENVATINIB
     Indication: ENDOMETRIAL CANCER
     Route: 048
     Dates: start: 20190814
  4. EMIZOF [Concomitant]
     Dates: start: 201906
  5. LEVOMEPROMAZINE [Concomitant]
     Active Substance: LEVOMEPROMAZINE
     Dates: start: 201906
  6. CYCLIZINE [Concomitant]
     Active Substance: CYCLIZINE
     Dates: start: 20190829
  7. ELTROXIN [Concomitant]
     Active Substance: LEVOTHYROXINE
     Dates: start: 200101
  8. ACETAMINOPHEN. [Concomitant]
     Active Substance: ACETAMINOPHEN
     Dates: start: 20190909
  9. MST [Concomitant]
     Dates: start: 20191107, end: 20191128
  10. ORAMORPH [Concomitant]
     Active Substance: MORPHINE SULFATE
     Dates: start: 201906
  11. MAGNESIUM SULFATE. [Concomitant]
     Active Substance: MAGNESIUM SULFATE
     Dates: start: 20191128, end: 20191205
  12. VALOID [Concomitant]
     Active Substance: CYCLIZINE HYDROCHLORIDE
     Dates: start: 201906
  13. ONDANSETRON [Concomitant]
     Active Substance: ONDANSETRON
     Dates: start: 20191128
  14. PEMBROLIZUMAB. [Suspect]
     Active Substance: PEMBROLIZUMAB
     Route: 041
     Dates: start: 20191128, end: 20191128
  15. ESOMEPRAZOLE. [Concomitant]
     Active Substance: ESOMEPRAZOLE MAGNESIUM
     Dates: start: 20190923
  16. ORAMORPH [Concomitant]
     Active Substance: MORPHINE SULFATE
     Dates: start: 20191113
  17. VALOID [Concomitant]
     Active Substance: CYCLIZINE HYDROCHLORIDE
     Dates: start: 201906
  18. PEMBROLIZUMAB. [Suspect]
     Active Substance: PEMBROLIZUMAB
     Indication: ENDOMETRIAL CANCER
     Route: 041
     Dates: start: 20190814, end: 20191107
  19. MST [Concomitant]
     Dates: start: 20191129
  20. CYCLIZINE [Concomitant]
     Active Substance: CYCLIZINE
     Dates: start: 201906
  21. CENTRUM [Concomitant]
     Active Substance: VITAMINS
     Dates: start: 20190904
  22. CALCICHEW [Concomitant]
     Active Substance: CALCIUM CARBONATE
     Dates: start: 20191128

REACTIONS (1)
  - Malignant neoplasm progression [Not Recovered/Not Resolved]

NARRATIVE: CASE EVENT DATE: 20191206
